FAERS Safety Report 9115515 (Version 1)
Quarter: 2013Q1

REPORT INFORMATION
  Report Type: Spontaneous
  Country: US (occurrence: US)
  Receive Date: 20130225
  Receipt Date: 20130225
  Transmission Date: 20140127
  Serious: No
  Sender: FDA-Public Use
  Company Number: US-ENDO PHARMACEUTICALS INC.-FORT20120155

PATIENT
  Sex: Male

DRUGS (3)
  1. FORTESTA [Suspect]
     Indication: BLOOD TESTOSTERONE DECREASED
     Route: 061
     Dates: start: 201206, end: 201206
  2. FORTESTA [Suspect]
     Route: 061
     Dates: start: 201206, end: 201207
  3. FORTESTA [Suspect]
     Route: 061
     Dates: start: 201207

REACTIONS (3)
  - Night sweats [Recovering/Resolving]
  - Tremor [Recovering/Resolving]
  - Feeling abnormal [Recovering/Resolving]
